FAERS Safety Report 16209333 (Version 1)
Quarter: 2019Q2

REPORT INFORMATION
  Report Type: Spontaneous
  Country: NL (occurrence: NL)
  Receive Date: 20190417
  Receipt Date: 20190417
  Transmission Date: 20190711
  Serious: Yes (Other)
  Sender: FDA-Public Use
  Company Number: NL-TEVA-2019-NL-1038120

PATIENT
  Sex: Male
  Weight: 90 kg

DRUGS (2)
  1. OXYCODONE [Suspect]
     Active Substance: OXYCODONE
     Dosage: OXYCODONE HCL TABL OMH 5MG IF NECESSARY 6 TIMES A DAY 1 TABLET AND OXYCODONE HCL TABET MVA 10MG TWO
     Dates: start: 20190123, end: 20190205
  2. OXYCODONE [Suspect]
     Active Substance: OXYCODONE
     Indication: PERIOPERATIVE ANALGESIA
     Dosage: OXYCODONE HCL TABL OMH 5MG IF NECESSARY 6 TIMES A DAY 1 TABLET AND OXYCODONE HCL TABET MVA 10MG TWO
     Dates: start: 20190123, end: 20190205

REACTIONS (6)
  - Hypoaesthesia [Recovering/Resolving]
  - Mental impairment [Recovering/Resolving]
  - Decreased appetite [Recovering/Resolving]
  - Tremor [Recovering/Resolving]
  - Nausea [Recovering/Resolving]
  - Circadian rhythm sleep disorder [Recovering/Resolving]
